FAERS Safety Report 15408180 (Version 5)
Quarter: 2018Q4

REPORT INFORMATION
  Report Type: Report from Study
  Country: IE (occurrence: IE)
  Receive Date: 20180920
  Receipt Date: 20181224
  Transmission Date: 20190204
  Serious: Yes (Other)
  Sender: FDA-Public Use
  Company Number: IE-JNJFOC-20180921061

PATIENT
  Age: 71 Year
  Sex: Female

DRUGS (16)
  1. METHOTREXATE. [Concomitant]
     Active Substance: METHOTREXATE
     Route: 050
  2. OLMESARTAN [Concomitant]
     Active Substance: OLMESARTAN
     Route: 050
  3. BISOP [Concomitant]
     Route: 050
  4. SIMPONI [Suspect]
     Active Substance: GOLIMUMAB
     Indication: PRODUCT USED FOR UNKNOWN INDICATION
     Route: 058
     Dates: start: 20151203
  5. SALAZOPYRIN [Concomitant]
     Active Substance: SULFASALAZINE
     Route: 050
  6. FOLIC ACID. [Concomitant]
     Active Substance: FOLIC ACID
     Route: 050
  7. ROACTEMRA [Concomitant]
     Active Substance: TOCILIZUMAB
     Dosage: DOSE: 1 UNIT NA
     Route: 050
  8. FABRAZYME [Suspect]
     Active Substance: AGALSIDASE BETA
     Indication: FABRY^S DISEASE
     Route: 042
     Dates: start: 20111220
  9. ASPIRIN. [Concomitant]
     Active Substance: ASPIRIN
     Route: 050
  10. OMESAR [Concomitant]
     Active Substance: OLMESARTAN MEDOXOMIL
     Route: 050
  11. FUROSEMIDE. [Concomitant]
     Active Substance: FUROSEMIDE
     Route: 050
  12. ESOMEPRAZOLE. [Concomitant]
     Active Substance: ESOMEPRAZOLE MAGNESIUM
     Route: 050
  13. LIPITOR [Concomitant]
     Active Substance: ATORVASTATIN CALCIUM
     Route: 050
  14. NU SEALS [Concomitant]
     Route: 050
  15. LERCANIDIPINE [Concomitant]
     Active Substance: LERCANIDIPINE
     Route: 050
  16. AMOXICILLIN. [Concomitant]
     Active Substance: AMOXICILLIN
     Route: 065

REACTIONS (6)
  - Lower respiratory tract infection [Not Recovered/Not Resolved]
  - Bronchitis [Recovered/Resolved]
  - Dizziness [Not Recovered/Not Resolved]
  - Peripheral coldness [Not Recovered/Not Resolved]
  - Cough [Not Recovered/Not Resolved]
  - Diarrhoea [Recovered/Resolved]

NARRATIVE: CASE EVENT DATE: 2018
